FAERS Safety Report 17500800 (Version 1)
Quarter: 2020Q1

REPORT INFORMATION
  Report Type: Spontaneous
  Country: US (occurrence: US)
  Receive Date: 20200305
  Receipt Date: 20200305
  Transmission Date: 20200409
  Serious: No
  Sender: FDA-Public Use
  Company Number: US-GLAXOSMITHKLINE-US2020034234

PATIENT
  Sex: Male

DRUGS (1)
  1. ANORO ELLIPTA [Suspect]
     Active Substance: UMECLIDINIUM BROMIDE\VILANTEROL TRIFENATATE
     Indication: OXYGEN SATURATION DECREASED
     Dosage: 1 PUFF(S), 1D
     Route: 055

REACTIONS (4)
  - Product use in unapproved indication [Unknown]
  - Nervousness [Recovered/Resolved]
  - Palpitations [Recovered/Resolved]
  - Psychomotor hyperactivity [Recovered/Resolved]
